FAERS Safety Report 18077569 (Version 14)
Quarter: 2022Q3

REPORT INFORMATION
  Report Type: Spontaneous
  Country: US (occurrence: US)
  Receive Date: 20200727
  Receipt Date: 20220824
  Transmission Date: 20221027
  Serious: Yes (Other)
  Sender: FDA-Public Use
  Company Number: US-MALLINCKRODT-T202003654

PATIENT
  Sex: Female
  Weight: 124 kg

DRUGS (5)
  1. H.P. ACTHAR [Suspect]
     Active Substance: CORTICOTROPIN
     Indication: Systemic lupus erythematosus
     Dosage: 80 UNITS, 3 TIMES A WEEK
     Route: 058
     Dates: start: 20170817
  2. H.P. ACTHAR [Suspect]
     Active Substance: CORTICOTROPIN
     Dosage: 80 UNITS TWICE WEEKLY (MONDAYS AND WEDNESDAYS/THURSDAYS)
     Route: 065
  3. H.P. ACTHAR [Suspect]
     Active Substance: CORTICOTROPIN
     Dosage: 80 UNITS CHANGED THE DOSE TO MONDAY AND SUNDAY AND THEN TO MONDAYS AND TUESDAYS
     Route: 065
     Dates: start: 202006, end: 2020
  4. H.P. ACTHAR [Suspect]
     Active Substance: CORTICOTROPIN
     Dosage: 80 UNITS 3 TIMES A WEEK (TUESDAY, THURSDAY AND SATURDAY)
     Route: 058
     Dates: start: 2020, end: 202108
  5. H.P. ACTHAR [Suspect]
     Active Substance: CORTICOTROPIN
     Dosage: 80 UNITS, THREE TIMES A WEEK
     Route: 058
     Dates: start: 20210827

REACTIONS (22)
  - COVID-19 [Recovering/Resolving]
  - Systemic lupus erythematosus [Not Recovered/Not Resolved]
  - Nephrolithiasis [Not Recovered/Not Resolved]
  - Spinal stenosis [Not Recovered/Not Resolved]
  - Renal failure [Not Recovered/Not Resolved]
  - White blood cell count decreased [Recovering/Resolving]
  - White blood cell count increased [Not Recovered/Not Resolved]
  - Pain [Unknown]
  - Nausea [Unknown]
  - Arthritis [Not Recovered/Not Resolved]
  - Grip strength decreased [Not Recovered/Not Resolved]
  - Burning sensation [Not Recovered/Not Resolved]
  - Weight increased [Recovering/Resolving]
  - Insomnia [Unknown]
  - Blood pressure increased [Recovering/Resolving]
  - Malaise [Not Recovered/Not Resolved]
  - Joint swelling [Not Recovered/Not Resolved]
  - Pain in extremity [Not Recovered/Not Resolved]
  - Headache [Unknown]
  - Inappropriate schedule of product administration [Unknown]
  - Product dose omission issue [Unknown]
  - Product use issue [Unknown]

NARRATIVE: CASE EVENT DATE: 20200101
